FAERS Safety Report 8204452-0 (Version None)
Quarter: 2012Q1

REPORT INFORMATION
  Report Type: 
  Country: None (occurrence: None)
  Receive Date: 20120313
  Receipt Date: 20120301
  Transmission Date: 20120608
  Serious: Yes (Hospitalization, Other)
  Sender: FDA-Public Use
  Company Number: GB-JNJFOC-20120302293

PATIENT
  Age: 50 Year
  Sex: Male

DRUGS (18)
  1. STELARA [Suspect]
     Indication: PSORIASIS
     Route: 058
  2. PERINDOPRIL ERBUMINE [Concomitant]
     Route: 048
  3. DILTIAZEM HCL [Concomitant]
     Route: 048
  4. ZOLPIDEM [Concomitant]
     Route: 048
  5. VITAMIN D [Concomitant]
     Route: 065
  6. FOLIC ACID [Concomitant]
     Route: 048
  7. STELARA [Suspect]
     Route: 058
  8. DIGOXIN [Concomitant]
     Route: 065
  9. PREGABALIN [Concomitant]
     Indication: PAIN
     Route: 065
  10. TRAMADOL HCL [Concomitant]
     Route: 065
  11. MOVIPREP [Concomitant]
     Route: 065
  12. MIRTAZAPINE [Concomitant]
     Route: 065
  13. DIAZEPAM [Concomitant]
     Route: 065
  14. PHENERGAN [Concomitant]
     Indication: ANTIALLERGIC THERAPY
     Route: 065
  15. METHOTREXATE [Concomitant]
     Indication: PSORIATIC ARTHROPATHY
     Route: 030
  16. ATORVASTATIN [Concomitant]
     Indication: BLOOD CHOLESTEROL INCREASED
     Route: 065
  17. ZOPICLONE [Concomitant]
     Route: 065
  18. ACETAMINOPHEN AND CODEINE PHOSPHATE [Concomitant]
     Route: 065

REACTIONS (8)
  - HYPERTENSION [None]
  - BACK PAIN [None]
  - MUSCULOSKELETAL PAIN [None]
  - ARTHRALGIA [None]
  - DRUG INEFFECTIVE [None]
  - ATRIAL FIBRILLATION [None]
  - WEIGHT INCREASED [None]
  - PSORIASIS [None]
